FAERS Safety Report 14962163 (Version 1)
Quarter: 2018Q2

REPORT INFORMATION
  Report Type: Report from Study
  Country: FR (occurrence: FR)
  Receive Date: 20180601
  Receipt Date: 20180601
  Transmission Date: 20180711
  Serious: Yes (Other)
  Sender: FDA-Public Use
  Company Number: FR-TEVA-2018-FR-896962

PATIENT

DRUGS (3)
  1. TACROLIMUS. [Suspect]
     Active Substance: TACROLIMUS
     Indication: RENAL TRANSPLANT
     Dosage: 19 MILLIGRAM DAILY;
     Route: 065
     Dates: start: 20161219, end: 20170109
  2. CELLCEPT [Concomitant]
     Active Substance: MYCOPHENOLATE MOFETIL\MYCOPHENOLATE MOFETIL HYDROCHLORIDE
     Indication: IMMUNOSUPPRESSION
     Dosage: 2000 UNKNOWN DAILY; 1 UNK, QD (2000 UNSPECIFIED UNIT, ONCE DAILY)
     Route: 065
     Dates: start: 20161219, end: 20170123
  3. CORTANCYL [Concomitant]
     Active Substance: PREDNISONE
     Indication: IMMUNOSUPPRESSION
     Dosage: 1 DOSAGE FORMS DAILY; 1 UNK, QD (40 UNSPECIFIED UNIT ONCE DAILY)
     Route: 065
     Dates: start: 20161228, end: 20170112

REACTIONS (1)
  - BK virus infection [Not Recovered/Not Resolved]

NARRATIVE: CASE EVENT DATE: 20170112
